FAERS Safety Report 20782492 (Version 1)
Quarter: 2022Q2

REPORT INFORMATION
  Report Type: Spontaneous
  Country: US (occurrence: US)
  Receive Date: 20220504
  Receipt Date: 20220504
  Transmission Date: 20220720
  Serious: No
  Sender: FDA-Public Use
  Company Number: US-BRISTOL-MYERS SQUIBB COMPANY-2022-030351

PATIENT
  Age: 76 Year
  Sex: Male

DRUGS (2)
  1. REVLIMID [Suspect]
     Active Substance: LENALIDOMIDE
     Indication: Mantle cell lymphoma
     Dosage: CYCLE: 21 DAYS ON, 7 DAYS OFF
     Route: 048
     Dates: start: 20220104
  2. REVLIMID [Suspect]
     Active Substance: LENALIDOMIDE
     Indication: Burkitt^s lymphoma stage IV

REACTIONS (4)
  - Rash [Unknown]
  - Headache [Unknown]
  - Myalgia [Unknown]
  - Intentional product use issue [Unknown]
